FAERS Safety Report 8242583-X (Version None)
Quarter: 2012Q1

REPORT INFORMATION
  Report Type: 
  Country: None (occurrence: None)
  Receive Date: 20120329
  Receipt Date: 20120323
  Transmission Date: 20120608
  Serious: Yes (Other)
  Sender: FDA-Public Use
  Company Number: PHHY2012JP021454

PATIENT
  Age: 76 Year
  Sex: Male

DRUGS (3)
  1. ZOMETA [Suspect]
     Indication: METASTASES TO BONE
     Dosage: 4 MG, UNK
     Route: 041
     Dates: start: 20110101, end: 20110801
  2. DECADRON [Concomitant]
     Dosage: 1.5 MG, UNK
     Dates: start: 20110422, end: 20120323
  3. TAXOTERE [Concomitant]

REACTIONS (11)
  - LYMPHADENOPATHY [None]
  - SOFT TISSUE INFECTION [None]
  - GINGIVAL INFECTION [None]
  - SWELLING [None]
  - LYMPH NODE PAIN [None]
  - OSTEOMYELITIS [None]
  - GINGIVITIS [None]
  - GINGIVAL ERYTHEMA [None]
  - PAIN IN JAW [None]
  - EXPOSED BONE IN JAW [None]
  - OSTEONECROSIS OF JAW [None]
